FAERS Safety Report 4522671-1 (Version None)
Quarter: 2004Q4

REPORT INFORMATION
  Report Type: 
  Country: None (occurrence: None)
  Receive Date: 20041209
  Receipt Date: 20040902
  Transmission Date: 20050328
  Serious: Yes (Other)
  Sender: FDA-Public Use
  Company Number: JP-ABBOTT-04P-087-0272613-00

PATIENT
  Sex: Male
  Weight: 59 kg

DRUGS (2)
  1. KLARICID [Suspect]
     Indication: PHARYNGITIS
     Route: 048
     Dates: start: 20040831, end: 20040902
  2. PARACETAMOL [Suspect]
     Indication: PHARYNGITIS
     Route: 048
     Dates: start: 20040831, end: 20040902

REACTIONS (3)
  - MUSCLE TIGHTNESS [None]
  - MYALGIA [None]
  - RHABDOMYOLYSIS [None]
